FAERS Safety Report 16473383 (Version 1)
Quarter: 2019Q2

REPORT INFORMATION
  Report Type: Spontaneous
  Country: US (occurrence: US)
  Receive Date: 20190515
  Receipt Date: 20190515
  Transmission Date: 20190711
  Serious: No
  Sender: FDA-Public Use
  Company Number: None

PATIENT
  Sex: Female

DRUGS (1)
  1. HUMIRA [Suspect]
     Active Substance: ADALIMUMAB
     Indication: PSORIASIS
     Route: 058
     Dates: start: 20190208, end: 20190425

REACTIONS (5)
  - Pruritus [None]
  - Urticaria [None]
  - Sneezing [None]
  - Rhinorrhoea [None]
  - Therapy cessation [None]
